FAERS Safety Report 21826093 (Version 4)
Quarter: 2023Q1

REPORT INFORMATION
  Report Type: Spontaneous
  Country: EG (occurrence: EG)
  Receive Date: 20230106
  Receipt Date: 20230307
  Transmission Date: 20230417
  Serious: Yes (Life-Threatening, Hospitalization, Other)
  Sender: FDA-Public Use
  Company Number: EG-NOVOPROD-1009346

PATIENT
  Age: 14 Year
  Sex: Female

DRUGS (3)
  1. LANTUS [Concomitant]
     Active Substance: INSULIN GLARGINE
     Indication: Diabetes mellitus
     Dosage: 20 IU, QD
  2. ACTRAPID [Suspect]
     Active Substance: INSULIN HUMAN
     Dosage: UNK(CORRECTION FACTOR IS 1U DECREASES 30MG/DL WHEN HER BGL ABOVE 200MG/DL)
     Route: 058
  3. ACTRAPID [Suspect]
     Active Substance: INSULIN HUMAN
     Indication: Diabetes mellitus
     Dosage: 10 IU, TID
     Route: 058

REACTIONS (10)
  - Hypoglycaemic coma [Recovered/Resolved]
  - Diabetic hyperglycaemic coma [Recovered/Resolved]
  - Device delivery system issue [Unknown]
  - Fatigue [Unknown]
  - Diabetic ketoacidosis [Recovered/Resolved]
  - Device mechanical issue [Unknown]
  - Device breakage [Unknown]
  - Hyperglycaemia [Not Recovered/Not Resolved]
  - Product storage error [Unknown]
  - Wrong technique in product usage process [Unknown]

NARRATIVE: CASE EVENT DATE: 20210101
